FAERS Safety Report 7560104-1 (Version None)
Quarter: 2011Q2

REPORT INFORMATION
  Report Type: 
  Country: None (occurrence: None)
  Receive Date: 20110621
  Receipt Date: 20110602
  Transmission Date: 20111010
  Serious: Yes (Other)
  Sender: FDA-Public Use
  Company Number: A0862304A

PATIENT
  Sex: Male
  Weight: 127.3 kg

DRUGS (10)
  1. GLUCOTROL [Concomitant]
  2. LASIX [Concomitant]
  3. ACIPHEX [Concomitant]
  4. METFORMIN HCL [Concomitant]
  5. AVANDIA [Suspect]
     Indication: DIABETES MELLITUS
     Dosage: 8MG PER DAY
     Route: 048
     Dates: end: 20090330
  6. ASPIRIN [Concomitant]
  7. LISINOPRIL [Concomitant]
  8. FUROSEMIDE [Concomitant]
  9. GLUCOPHAGE [Concomitant]
  10. LIPITOR [Concomitant]

REACTIONS (6)
  - LIVER INJURY [None]
  - CARDIAC ARREST [None]
  - FLUID RETENTION [None]
  - FLUID OVERLOAD [None]
  - CEREBROVASCULAR ACCIDENT [None]
  - HEART INJURY [None]
